FAERS Safety Report 19751321 (Version 1)
Quarter: 2021Q3

REPORT INFORMATION
  Report Type: Report from Study
  Country: US (occurrence: US)
  Receive Date: 20210826
  Receipt Date: 20210826
  Transmission Date: 20211014
  Serious: No
  Sender: FDA-Public Use
  Company Number: US-ACADIA PHARMACEUTICALS INC.-ACA-2021-PIM-002857

PATIENT
  Sex: Male
  Weight: 98 kg

DRUGS (7)
  1. NEUPRO [Concomitant]
     Active Substance: ROTIGOTINE
  2. NUPLAZID [Suspect]
     Active Substance: PIMAVANSERIN TARTRATE
     Indication: DELUSION
  3. DONEPEZIL. [Concomitant]
     Active Substance: DONEPEZIL
  4. NUPLAZID [Suspect]
     Active Substance: PIMAVANSERIN TARTRATE
     Indication: PARKINSON^S DISEASE PSYCHOSIS
     Dosage: 34 MILLIGRAM, QD
     Route: 065
  5. MEMANTINE. [Concomitant]
     Active Substance: MEMANTINE
     Dosage: 10 MILLIGRAM
  6. MELATONIN [Concomitant]
     Active Substance: MELATONIN
  7. NUPLAZID [Suspect]
     Active Substance: PIMAVANSERIN TARTRATE
     Indication: HALLUCINATION

REACTIONS (6)
  - Muscular weakness [Unknown]
  - Drooling [Unknown]
  - Dementia [Unknown]
  - Hallucination [Recovering/Resolving]
  - Asthenia [Recovering/Resolving]
  - Delusion [Unknown]
